FAERS Safety Report 10215749 (Version 2)
Quarter: 2014Q2

REPORT INFORMATION
  Report Type: Spontaneous
  Country: US (occurrence: None)
  Receive Date: 20140515
  Receipt Date: 20140606
  Transmission Date: 20141212
  Serious: Yes (Other)
  Sender: FDA-Public Use
  Company Number: 2014US003697

PATIENT
  Sex: Female

DRUGS (7)
  1. GLASSIA [Suspect]
     Indication: ALPHA-1 ANTI-TRYPSIN DEFICIENCY
     Route: 042
     Dates: start: 20140317
  2. ZOMIG (ZOLMITRIPTAN) [Concomitant]
  3. SINGULAIR (MONTELUKAST SODIUM) TABLET [Concomitant]
  4. SINGULAIR (MONTELUKAST SODIUM) TABLET [Concomitant]
  5. PROVENTIL (SALBUTAMOL) [Concomitant]
  6. PRILOSEC (OMEPRAZOLE) [Concomitant]
  7. DUONEB (PRATROPIUM BROMIDE, SALBUTAMOL SULFATE) [Concomitant]

REACTIONS (2)
  - Blood urine present [None]
  - Pain [None]
